FAERS Safety Report 19438600 (Version 1)
Quarter: 2021Q2

REPORT INFORMATION
  Report Type: Report from Study
  Country: MX (occurrence: MX)
  Receive Date: 20210619
  Receipt Date: 20210619
  Transmission Date: 20210717
  Serious: Yes (Life-Threatening, Other)
  Sender: FDA-Public Use
  Company Number: NVSC2021MX134983

PATIENT
  Sex: Female
  Weight: 80 kg

DRUGS (12)
  1. ENTRESTO [Suspect]
     Active Substance: SACUBITRIL\VALSARTAN
     Indication: MYOCARDIAL ISCHAEMIA
     Dosage: 1 DF, BID (50 MG)
     Route: 048
  2. MICCIL [Concomitant]
     Indication: DIURETIC THERAPY
     Dosage: 2 DF ((1GR), QD (STARTED APPROXIMATELY 4 YEARS AGO)
     Route: 048
  3. DILATREND [Concomitant]
     Active Substance: CARVEDILOL
     Indication: PRODUCT USED FOR UNKNOWN INDICATION
     Dosage: UNK, UNKNOWN
     Route: 065
  4. ENTRESTO [Suspect]
     Active Substance: SACUBITRIL\VALSARTAN
     Indication: BLOOD DISORDER
     Dosage: 0.5 DF, BID (100 MG) (2 YEARS AND A HALF AGO)
     Route: 048
  5. METOPROLOL. [Suspect]
     Active Substance: METOPROLOL
     Indication: PRODUCT USED FOR UNKNOWN INDICATION
     Dosage: UNK (THREE FOURTH TO HALF) (ONLY WHEN IT IS NEEDED)
     Route: 048
  6. VITAMIN B [Concomitant]
     Active Substance: VITAMIN B
     Indication: PRODUCT USED FOR UNKNOWN INDICATION
     Dosage: UNK, UNKNOWN
     Route: 065
  7. DIPROSPAN [Concomitant]
     Active Substance: BETAMETHASONE DIPROPIONATE\BETAMETHASONE SODIUM PHOSPHATE
     Indication: FIBROMYALGIA
     Dosage: UNK, UNKNOWN
     Route: 065
  8. METOPROLOL. [Suspect]
     Active Substance: METOPROLOL
     Dosage: 0.25 DF, QD (DOSE NOT REPORTED)
     Route: 048
  9. IDAPTAN [Suspect]
     Active Substance: TRIMETAZIDINE DIHYDROCHLORIDE
     Indication: PRODUCT USED FOR UNKNOWN INDICATION
     Dosage: 1 DF, BID (DOSE NOT REPORTED)
     Route: 048
  10. ESOMEPRAZOLE. [Concomitant]
     Active Substance: ESOMEPRAZOLE MAGNESIUM
     Indication: PRODUCT USED FOR UNKNOWN INDICATION
     Dosage: 1 DF, TID (DOSE NOT REPORTED)
     Route: 048
  11. ENTRESTO [Suspect]
     Active Substance: SACUBITRIL\VALSARTAN
     Dosage: 0.5 DF (100 MG), BID (MORE THAN 3 YEARS AGO)
     Route: 048
  12. LEVOTHYROXINE. [Concomitant]
     Active Substance: LEVOTHYROXINE
     Indication: HYPOTHYROIDISM
     Dosage: 150 MG, UNKNOWN (STARTED 21 YEARS AGO)
     Route: 065

REACTIONS (13)
  - Tachycardia [Unknown]
  - Abdominal pain upper [Unknown]
  - Distractibility [Unknown]
  - Wrong technique in product usage process [Unknown]
  - Constipation [Unknown]
  - Near death experience [Unknown]
  - Fluid retention [Unknown]
  - Palpitations [Unknown]
  - Angina unstable [Unknown]
  - Irritability [Unknown]
  - Nausea [Unknown]
  - Pain in extremity [Unknown]
  - Product use in unapproved indication [Unknown]
